FAERS Safety Report 7071887-1 (Version None)
Quarter: 2010Q4

REPORT INFORMATION
  Report Type: 
  Country: None (occurrence: None)
  Receive Date: 20101029
  Receipt Date: 20091028
  Transmission Date: 20110411
  Serious: No
  Sender: FDA-Public Use
  Company Number: A0814240A

PATIENT

DRUGS (4)
  1. ADVAIR DISKUS 100/50 [Suspect]
     Indication: PRODUCT USED FOR UNKNOWN INDICATION
  2. SINGULAIR [Concomitant]
  3. ZYRTEC [Concomitant]
  4. XOPENEX [Concomitant]

REACTIONS (1)
  - MALAISE [None]
